FAERS Safety Report 5590633-1 (Version None)
Quarter: 2008Q1

REPORT INFORMATION
  Report Type: 
  Country: None (occurrence: None)
  Receive Date: 20080114
  Receipt Date: 20080103
  Transmission Date: 20080703
  Serious: Yes (Other)
  Sender: FDA-Public Use
  Company Number: CA-PFIZER INC-2007092554

PATIENT
  Sex: Female
  Weight: 56.7 kg

DRUGS (3)
  1. CHANTIX [Suspect]
     Indication: SMOKING CESSATION THERAPY
     Route: 048
     Dates: start: 20070601, end: 20070701
  2. FLEXERIL [Concomitant]
  3. IMOVANE [Concomitant]

REACTIONS (13)
  - ABNORMAL FAECES [None]
  - COLITIS [None]
  - CONSTIPATION [None]
  - ENTERITIS [None]
  - FLATULENCE [None]
  - HAEMATOCHEZIA [None]
  - MOUTH ULCERATION [None]
  - NAUSEA [None]
  - PROCTITIS [None]
  - PROCTITIS ULCERATIVE [None]
  - RECTAL HAEMORRHAGE [None]
  - RECTAL ULCER [None]
  - VOMITING [None]
